FAERS Safety Report 6744303-4 (Version None)
Quarter: 2010Q2

REPORT INFORMATION
  Report Type: 
  Country: None (occurrence: None)
  Receive Date: 20100527
  Receipt Date: 20100521
  Transmission Date: 20101027
  Serious: Yes (Other)
  Sender: FDA-Public Use
  Company Number: US-MERCK-1005USA03213

PATIENT
  Age: 36 Year
  Sex: Female

DRUGS (2)
  1. SINGULAIR [Suspect]
     Indication: RHINITIS
     Route: 048
     Dates: start: 20070501, end: 20070706
  2. CYMBALTA [Concomitant]
     Route: 065

REACTIONS (16)
  - ANXIETY [None]
  - BLOOD PRESSURE INCREASED [None]
  - DECREASED INTEREST [None]
  - DEPRESSION [None]
  - DIZZINESS [None]
  - FATIGUE [None]
  - HEART RATE INCREASED [None]
  - INSOMNIA [None]
  - IRRITABILITY [None]
  - MEMORY IMPAIRMENT [None]
  - MIGRAINE [None]
  - NAUSEA [None]
  - NIGHTMARE [None]
  - PREMENSTRUAL SYNDROME [None]
  - SUICIDAL IDEATION [None]
  - WEIGHT DECREASED [None]
